FAERS Safety Report 10993017 (Version 1)
Quarter: 2015Q2

REPORT INFORMATION
  Report Type: Spontaneous
  Country: BR (occurrence: BR)
  Receive Date: 20150406
  Receipt Date: 20150406
  Transmission Date: 20150821
  Serious: Yes (Other)
  Sender: FDA-Public Use
  Company Number: BR-MYLANLABS-2015M1010958

PATIENT

DRUGS (1)
  1. AMITRIPTYLINE [Suspect]
     Active Substance: AMITRIPTYLINE
     Indication: DUCHENNE MUSCULAR DYSTROPHY
     Dosage: 25MG/NIGHT
     Route: 065

REACTIONS (2)
  - Restless legs syndrome [Recovering/Resolving]
  - Condition aggravated [Recovering/Resolving]
